FAERS Safety Report 12412606 (Version 2)
Quarter: 2016Q2

REPORT INFORMATION
  Report Type: Spontaneous
  Country: CH (occurrence: CH)
  Receive Date: 20160527
  Receipt Date: 20160602
  Transmission Date: 20160815
  Serious: Yes (Hospitalization)
  Sender: FDA-Public Use
  Company Number: CH-GUERBET LLC-1052912

PATIENT
  Age: 30 Year
  Sex: Male
  Weight: 78 kg

DRUGS (3)
  1. HEXABRIX [Suspect]
     Active Substance: IOXAGLATE MEGLUMINE\IOXAGLATE SODIUM
     Route: 014
     Dates: start: 20160518, end: 20160518
  2. ARTIREM(GADOTERIC ACID) [Suspect]
     Active Substance: GADOTERATE MEGLUMINE
     Route: 014
  3. DOTAREM [Suspect]
     Active Substance: GADOTERATE MEGLUMINE
     Indication: ARTHROGRAM
     Route: 042
     Dates: start: 20160518, end: 20160518

REACTIONS (7)
  - Loss of consciousness [Recovering/Resolving]
  - Dyspnoea [Recovering/Resolving]
  - Vomiting [Recovering/Resolving]
  - Hyperhidrosis [Recovering/Resolving]
  - Circulatory collapse [Recovering/Resolving]
  - Lip oedema [Recovering/Resolving]
  - Chest discomfort [Recovering/Resolving]

NARRATIVE: CASE EVENT DATE: 20160518
